FAERS Safety Report 4422282-2 (Version None)
Quarter: 2004Q3

REPORT INFORMATION
  Report Type: 
  Country: None (occurrence: None)
  Receive Date: 20040708
  Receipt Date: 20040308
  Transmission Date: 20050211
  Serious: Yes (Other)
  Sender: FDA-Public Use
  Company Number: USA-04-0004-PRCH2

PATIENT
  Sex: Female

DRUGS (3)
  1. PROCHIEVE 8% (PROGESTERONE GEL) [Suspect]
     Indication: REPRODUCTIVE TRACT DISORDER
     Dosage: ONE APPLICATOR DAILY X 18D
     Dates: start: 20040124
  2. CLOMIPHENE CITRATE [Concomitant]
  3. ESTRADIOL [Concomitant]

REACTIONS (1)
  - ABORTION SPONTANEOUS [None]
